FAERS Safety Report 20963398 (Version 3)
Quarter: 2022Q3

REPORT INFORMATION
  Report Type: Other
  Country: CN (occurrence: CN)
  Receive Date: 20220615
  Receipt Date: 20220908
  Transmission Date: 20221026
  Serious: Yes (Hospitalization, Other)
  Sender: FDA-Public Use
  Company Number: CN-CSTONE PHARMACEUTICALS (SUZHOU) CO., LTD.-2022CN00718

PATIENT
  Age: 82 Year
  Sex: Male

DRUGS (2)
  1. AYVAKIT [Suspect]
     Active Substance: AVAPRITINIB
     Indication: Gastrointestinal stromal tumour
     Dosage: UNK, UNKNOWN
     Route: 048
     Dates: start: 20220402, end: 20220425
  2. AYVAKIT [Suspect]
     Active Substance: AVAPRITINIB
     Dosage: 100 MILLIGRAM, UNKNOWN
     Route: 048
     Dates: end: 20220720

REACTIONS (8)
  - Hypogeusia [Recovering/Resolving]
  - Decreased appetite [Recovering/Resolving]
  - Eye oedema [Recovering/Resolving]
  - Pleural effusion [Recovering/Resolving]
  - Ascites [Not Recovered/Not Resolved]
  - Asthenia [Not Recovered/Not Resolved]
  - Alopecia [Not Recovered/Not Resolved]
  - Memory impairment [Not Recovered/Not Resolved]

NARRATIVE: CASE EVENT DATE: 20220417
